FAERS Safety Report 21057480 (Version 2)
Quarter: 2022Q3

REPORT INFORMATION
  Report Type: Report from Study
  Country: US (occurrence: None)
  Receive Date: 20220708
  Receipt Date: 20220818
  Transmission Date: 20221026
  Serious: Yes (Other)
  Sender: FDA-Public Use
  Company Number: US-Merck Healthcare KGaA-9334072

PATIENT
  Sex: Female

DRUGS (1)
  1. REBIF [Suspect]
     Active Substance: INTERFERON BETA-1A
     Indication: Multiple sclerosis
     Dosage: REBIF PREFILLED SYRINGE
     Route: 058
     Dates: start: 20101004

REACTIONS (5)
  - Large intestine polyp [Unknown]
  - Haematochezia [Unknown]
  - Haemorrhoids [Unknown]
  - Constipation [Unknown]
  - Procedural pneumothorax [Unknown]
